FAERS Safety Report 23787778 (Version 1)
Quarter: 2024Q2

REPORT INFORMATION
  Report Type: Spontaneous
  Country: FR (occurrence: FR)
  Receive Date: 20240426
  Receipt Date: 20240426
  Transmission Date: 20240716
  Serious: Yes (Other)
  Sender: FDA-Public Use
  Company Number: None

PATIENT
  Age: 49 Year
  Sex: Female
  Weight: 168 kg

DRUGS (2)
  1. MEDROXYPROGESTERONE ACETATE [Suspect]
     Active Substance: MEDROXYPROGESTERONE ACETATE
     Indication: Endometrial cancer
     Dosage: UNK
     Route: 030
     Dates: start: 201901, end: 20240322
  2. MEGACE [Suspect]
     Active Substance: MEGESTROL ACETATE
     Indication: Endometrial cancer
     Dosage: 160 MG, 1X/DAY
     Route: 048
     Dates: start: 201901, end: 20240322

REACTIONS (1)
  - Meningioma [Not Recovered/Not Resolved]

NARRATIVE: CASE EVENT DATE: 20240116
